FAERS Safety Report 5153484-8 (Version None)
Quarter: 2006Q4

REPORT INFORMATION
  Report Type: 
  Country: None (occurrence: None)
  Receive Date: 20061117
  Receipt Date: 20061106
  Transmission Date: 20070319
  Serious: Yes (Other)
  Sender: FDA-Public Use
  Company Number: GB-MERCK-0611GBR00034

PATIENT
  Age: 11 Year

DRUGS (4)
  1. SINGULAIR [Suspect]
     Indication: ASTHMA EXERCISE INDUCED
     Route: 048
     Dates: start: 20060919, end: 20060926
  2. BECLOMETHASONE DIPROPIONATE [Concomitant]
     Indication: ASTHMA
     Route: 065
     Dates: start: 20051101
  3. CHLORPHENIRAMINE MALEATE [Concomitant]
     Indication: HYPERSENSITIVITY
     Route: 048
     Dates: start: 20020101, end: 20060918
  4. ALBUTEROL [Concomitant]
     Indication: ASTHMA
     Route: 065
     Dates: start: 20051101

REACTIONS (4)
  - DEPRESSION [None]
  - EMOTIONAL DISTRESS [None]
  - FEAR [None]
  - PANIC ATTACK [None]
